FAERS Safety Report 6038632-X (Version None)
Quarter: 2009Q1

REPORT INFORMATION
  Report Type: 
  Country: None (occurrence: None)
  Receive Date: 20090114
  Receipt Date: 20090114
  Transmission Date: 20090719
  Serious: Yes (Hospitalization)
  Sender: FDA-Public Use
  Company Number: None

PATIENT
  Age: 78 Year
  Sex: Male
  Weight: 66.2 kg

DRUGS (1)
  1. SENNA [Suspect]
     Indication: CONSTIPATION
     Dosage: 2 TAB EVERY DAY PO
     Route: 048
     Dates: start: 20081105, end: 20081106

REACTIONS (2)
  - RESPIRATORY DEPRESSION [None]
  - RESPIRATORY DISTRESS [None]
